FAERS Safety Report 10096032 (Version 2)
Quarter: 2014Q2

REPORT INFORMATION
  Report Type: Spontaneous
  Country: US (occurrence: US)
  Receive Date: 20140422
  Receipt Date: 20140509
  Transmission Date: 20141212
  Serious: Yes (Hospitalization)
  Sender: FDA-Public Use
  Company Number: US-BAYER-2014-056570

PATIENT
  Age: 35 Year
  Sex: Female

DRUGS (17)
  1. YASMIN [Suspect]
  2. DIAZEPAM [Concomitant]
     Dosage: 10 MG, UNK
     Route: 048
     Dates: start: 20040123, end: 20040608
  3. HYDROCODONE [Concomitant]
     Dosage: UNK
     Route: 048
     Dates: start: 20040204, end: 20040505
  4. METOPROLOL [Concomitant]
     Dosage: 50 MG, UNK
     Route: 048
     Dates: start: 20040312, end: 20040620
  5. CELEBREX [Concomitant]
     Dosage: 200 MG, UNK
     Route: 048
     Dates: start: 20040320
  6. AUGMENTIN XR [Concomitant]
     Dosage: 1000-62.5
  7. IBUPROFEN [Concomitant]
     Dosage: 800 MG, UNK
  8. LOPRESSOR [Concomitant]
  9. LORCET [Concomitant]
  10. VALIUM [Concomitant]
  11. XANAX [Concomitant]
     Dosage: 0.25 MG, TID
  12. DARVOCET [Concomitant]
     Dosage: UNK UNK, PRN
  13. BEXTRA [Concomitant]
  14. LIDODERM [Concomitant]
  15. VITAMIN B12 [Concomitant]
  16. PROTONIX [Concomitant]
  17. SYNTHROID [Concomitant]

REACTIONS (1)
  - Deep vein thrombosis [None]
